FAERS Safety Report 12286058 (Version 1)
Quarter: 2016Q2

REPORT INFORMATION
  Report Type: Spontaneous
  Country: GB (occurrence: GB)
  Receive Date: 20160420
  Receipt Date: 20160420
  Transmission Date: 20160815
  Serious: Yes (Death)
  Sender: FDA-Public Use
  Company Number: GB-BAXTER-2016BAX018834

PATIENT
  Age: 68 Year
  Sex: Male
  Weight: 61 kg

DRUGS (1)
  1. PHOXILIUM [Suspect]
     Active Substance: CALCIUM CHLORIDE\MAGNESIUM CHLORIDE\POTASSIUM CHLORIDE\SODIUM BICARBONATE\SODIUM CHLORIDE\SODIUM PHOSPHATE, DIBASIC
     Indication: HAEMODIALYSIS
     Route: 010
     Dates: start: 20160407

REACTIONS (1)
  - Death [Fatal]

NARRATIVE: CASE EVENT DATE: 20160408
